FAERS Safety Report 17170356 (Version 1)
Quarter: 2019Q4

REPORT INFORMATION
  Report Type: Spontaneous
  Country: KR (occurrence: KR)
  Receive Date: 20191218
  Receipt Date: 20191218
  Transmission Date: 20200122
  Serious: Yes (Life-Threatening)
  Sender: FDA-Public Use
  Company Number: KR-PFIZER INC-2019542046

PATIENT
  Age: 42 Year
  Sex: Female

DRUGS (13)
  1. LYRICA [Suspect]
     Active Substance: PREGABALIN
     Indication: REVERSIBLE CEREBRAL VASOCONSTRICTION SYNDROME
  2. ALPRAM [Suspect]
     Active Substance: ALPRAZOLAM
     Indication: HEADACHE
     Dosage: 0.5 MG, UNK
  3. IXEL [Suspect]
     Active Substance: MILNACIPRAN HYDROCHLORIDE
     Indication: REVERSIBLE CEREBRAL VASOCONSTRICTION SYNDROME
  4. LYRICA [Suspect]
     Active Substance: PREGABALIN
     Indication: HEADACHE
     Dosage: 150 MG, UNK
  5. TARGIN [Suspect]
     Active Substance: NALOXONE HYDROCHLORIDE\OXYCODONE HYDROCHLORIDE
     Indication: HEADACHE
     Dosage: UNK (10/5 MG)
  6. IXEL [Suspect]
     Active Substance: MILNACIPRAN HYDROCHLORIDE
     Indication: HEADACHE
     Dosage: 25 MG, UNK
  7. MEPIVACAINE [Concomitant]
     Active Substance: MEPIVACAINE HYDROCHLORIDE
     Indication: NERVE BLOCK
     Dosage: 1 ML, UNK, (BILATERAL TRIGGER POINT INJECTIONS (TPI), FOUR OCCASIONS)
  8. MEPIVACAINE [Concomitant]
     Active Substance: MEPIVACAINE HYDROCHLORIDE
     Indication: HEADACHE
  9. KINPOIN [Concomitant]
     Indication: HEADACHE
     Dosage: 75 MG, UNK
  10. DENOGAN [Concomitant]
     Active Substance: PROPACETAMOL HYDROCHLORIDE
     Indication: HEADACHE
     Dosage: 1 G, UNK
  11. TARGIN [Suspect]
     Active Substance: NALOXONE HYDROCHLORIDE\OXYCODONE HYDROCHLORIDE
     Indication: REVERSIBLE CEREBRAL VASOCONSTRICTION SYNDROME
  12. ALPRAM [Suspect]
     Active Substance: ALPRAZOLAM
     Indication: REVERSIBLE CEREBRAL VASOCONSTRICTION SYNDROME
  13. FROVATRIPTAN. [Suspect]
     Active Substance: FROVATRIPTAN
     Indication: HEADACHE
     Dosage: UNK

REACTIONS (2)
  - Drug ineffective for unapproved indication [Unknown]
  - Off label use [Unknown]
